FAERS Safety Report 5325936-9 (Version None)
Quarter: 2007Q2

REPORT INFORMATION
  Report Type: 
  Country: None (occurrence: None)
  Receive Date: 20070514
  Receipt Date: 20070514
  Transmission Date: 20071010
  Serious: Yes (Other)
  Sender: FDA-Public Use
  Company Number: None

PATIENT
  Age: 41 Year
  Sex: Male
  Weight: 70.7611 kg

DRUGS (3)
  1. AZACTAM [Suspect]
     Indication: WOUND
     Dosage: 2GM Q6H IV
     Route: 042
     Dates: start: 20070410, end: 20070508
  2. STERILE WATER [Concomitant]
  3. SODIUM CHLORIDE [Concomitant]

REACTIONS (3)
  - GASTROINTESTINAL DISORDER [None]
  - MALAISE [None]
  - MYALGIA [None]
